FAERS Safety Report 24696431 (Version 1)
Quarter: 2024Q4

REPORT INFORMATION
  Report Type: Spontaneous
  Country: SE (occurrence: SE)
  Receive Date: 20241204
  Receipt Date: 20241204
  Transmission Date: 20250114
  Serious: Yes (Disabling)
  Sender: TEVA
  Company Number: None

PATIENT
  Age: 66 Year
  Sex: Female
  Weight: 70 kg

DRUGS (2)
  1. ZOLEDRONIC ACID [Suspect]
     Active Substance: ZOLEDRONIC ACID
     Indication: Product used for unknown indication
     Route: 065
     Dates: start: 2018, end: 2021
  2. COLGATE DURAPHAT [Suspect]
     Active Substance: SODIUM FLUORIDE
     Indication: Dry mouth
     Route: 065
     Dates: start: 2021, end: 20240805

REACTIONS (3)
  - Bone hypertrophy [Recovering/Resolving]
  - Drug interaction [Recovering/Resolving]
  - Bone pain [Recovering/Resolving]

NARRATIVE: CASE EVENT DATE: 20230101
